FAERS Safety Report 4674313-2 (Version None)
Quarter: 2005Q2

REPORT INFORMATION
  Report Type: 
  Country: None (occurrence: None)
  Receive Date: 20050526
  Receipt Date: 20050511
  Transmission Date: 20051028
  Serious: Yes (Death, Life-Threatening)
  Sender: FDA-Public Use
  Company Number: 200514235GDDC

PATIENT
  Age: 49 Year
  Sex: Female
  Weight: 125 kg

DRUGS (11)
  1. CLEXANE [Suspect]
     Indication: THROMBOPHLEBITIS
     Route: 058
     Dates: start: 20050209
  2. DICLOCIL [Suspect]
     Route: 042
     Dates: start: 20050209, end: 20050213
  3. ACETAMINOPHEN [Suspect]
     Indication: PAIN
     Route: 048
     Dates: start: 20050209
  4. FLIXOTIDE [Concomitant]
     Indication: ASTHMA
     Route: 055
  5. MEGAFOL [Concomitant]
     Route: 048
  6. LASIX [Concomitant]
     Indication: POLYURIA
     Route: 048
  7. VENTOLIN [Concomitant]
     Indication: ASTHMA
     Route: 055
  8. MORPHINE SULFATE [Concomitant]
     Indication: PAIN
     Dates: start: 20050209
  9. TEMAZE [Concomitant]
     Route: 048
  10. ACETAMINOPHEN [Concomitant]
     Route: 048
     Dates: start: 20050209
  11. LOSEC [Concomitant]
     Route: 048

REACTIONS (9)
  - BLOOD BILIRUBIN INCREASED [None]
  - DEATH [None]
  - ENCEPHALOPATHY [None]
  - FLUID OVERLOAD [None]
  - HYPOGLYCAEMIA [None]
  - LIVER FUNCTION TEST ABNORMAL [None]
  - RENAL FAILURE [None]
  - RENAL IMPAIRMENT [None]
  - WHITE BLOOD CELL COUNT INCREASED [None]
